FAERS Safety Report 4557144-3 (Version None)
Quarter: 2005Q1

REPORT INFORMATION
  Report Type: 
  Country: None (occurrence: None)
  Receive Date: 20050118
  Receipt Date: 20040103
  Transmission Date: 20050727
  Serious: Yes (Other)
  Sender: FDA-Public Use
  Company Number: 2004-0007837

PATIENT
  Age: 17 Year
  Sex: Male
  Weight: 60 kg

DRUGS (7)
  1. HEPSERA [Suspect]
     Indication: HEPATITIS B
     Dosage: 10 MG, 1 IN 1 D, ORAL
     Route: 048
     Dates: start: 20040726, end: 20041007
  2. ROVALCYTE (VALGANCICLOVIR) [Suspect]
     Indication: INFECTION PROPHYLAXIS
     Dosage: 900 MG, 1 IN 1 D, ORAL
     Route: 048
     Dates: start: 20040726, end: 20041007
  3. NEORAL [Concomitant]
  4. CELLCEPT [Concomitant]
  5. PREDNISOLONE [Concomitant]
  6. OMEPRAZOLE [Concomitant]
  7. BACTRIM [Concomitant]

REACTIONS (1)
  - RHABDOMYOLYSIS [None]
